FAERS Safety Report 12383161 (Version 1)
Quarter: 2016Q2

REPORT INFORMATION
  Report Type: Spontaneous
  Country: US (occurrence: US)
  Receive Date: 20160518
  Receipt Date: 20160518
  Transmission Date: 20160815
  Serious: No
  Sender: FDA-Public Use
  Company Number: US-PFIZER INC-2016248169

PATIENT
  Sex: Female

DRUGS (1)
  1. PANTOPRAZOLE [Suspect]
     Active Substance: PANTOPRAZOLE SODIUM

REACTIONS (6)
  - Pruritus [Unknown]
  - Musculoskeletal stiffness [Unknown]
  - Rash [Unknown]
  - Drug intolerance [Unknown]
  - Feeling abnormal [Unknown]
  - Dyspepsia [Unknown]
